FAERS Safety Report 19077726 (Version 1)
Quarter: 2021Q1

REPORT INFORMATION
  Report Type: Spontaneous
  Country: US (occurrence: US)
  Receive Date: 20210331
  Receipt Date: 20210331
  Transmission Date: 20210420
  Serious: Yes (Other)
  Sender: FDA-Public Use
  Company Number: US-PFIZER INC-2021323865

PATIENT
  Age: 64 Year

DRUGS (2)
  1. LEVOTHYROXINE SODIUM. [Suspect]
     Active Substance: LEVOTHYROXINE SODIUM
     Dosage: UNK
  2. PROCARDIA XL [Suspect]
     Active Substance: NIFEDIPINE
     Dosage: UNK

REACTIONS (1)
  - Reynold^s syndrome [Unknown]
